FAERS Safety Report 16545026 (Version 1)
Quarter: 2019Q3

REPORT INFORMATION
  Report Type: Spontaneous
  Country: US (occurrence: US)
  Receive Date: 20190709
  Receipt Date: 20190709
  Transmission Date: 20191004
  Serious: Yes (Life-Threatening, Other)
  Sender: FDA-Public Use
  Company Number: US-HIKMA PHARMACEUTICALS USA INC.-US-H14001-19-45946

PATIENT
  Age: 52 Year
  Sex: Female
  Weight: 55 kg

DRUGS (14)
  1. CARBIDOPA 25 MG, LEVODOPA 100 MG [Suspect]
     Active Substance: CARBIDOPA\LEVODOPA
     Dosage: 25/100
     Route: 065
  2. LEVODOPA [Suspect]
     Active Substance: LEVODOPA
     Route: 065
  3. ROPINIROLE. [Suspect]
     Active Substance: ROPINIROLE
     Indication: PARKINSONISM
     Route: 065
  4. CARBIDOPA 25 MG, LEVODOPA 100 MG [Suspect]
     Active Substance: CARBIDOPA\LEVODOPA
     Route: 065
  5. ROTIGOTINE [Suspect]
     Active Substance: ROTIGOTINE
     Indication: PARKINSONISM
     Route: 062
  6. LEVODOPA [Suspect]
     Active Substance: LEVODOPA
     Indication: PARKINSONISM
     Route: 065
  7. ROPINIROLE. [Suspect]
     Active Substance: ROPINIROLE
     Route: 065
  8. CARBIDOPA 25 MG, LEVODOPA 100 MG [Suspect]
     Active Substance: CARBIDOPA\LEVODOPA
     Indication: PARKINSONISM
     Dosage: INCREASED DOSES OF CARBIDOPA/LEVODOPA, NOW 7-10 TABLETS DAILY
     Route: 065
  9. CLONAZEPAM. [Concomitant]
     Active Substance: CLONAZEPAM
     Indication: PRODUCT USED FOR UNKNOWN INDICATION
     Dosage: AT BEDTIME
     Route: 065
  10. ROPINIROLE. [Suspect]
     Active Substance: ROPINIROLE
     Dosage: ROPINIROLE XL
     Route: 065
  11. CARBIDOPA 25 MG, LEVODOPA 100 MG [Suspect]
     Active Substance: CARBIDOPA\LEVODOPA
     Dosage: TWO CARBIDOPA/LEVODOPA PER DAY
     Route: 065
  12. ESCITALOPRAM [Concomitant]
     Active Substance: ESCITALOPRAM OXALATE
     Indication: ANXIETY
     Route: 065
  13. ROTIGOTINE [Suspect]
     Active Substance: ROTIGOTINE
     Route: 062
  14. LEVODOPA [Suspect]
     Active Substance: LEVODOPA
     Dosage: MUCH GREATER FREQUENCY (
     Route: 065

REACTIONS (13)
  - Chest pain [Recovering/Resolving]
  - Hypotension [Recovering/Resolving]
  - Dopamine dysregulation syndrome [Recovering/Resolving]
  - Impulse-control disorder [Not Recovered/Not Resolved]
  - Weight decreased [Unknown]
  - Drug ineffective [Unknown]
  - Anxiety [Recovering/Resolving]
  - Panic attack [Recovering/Resolving]
  - Drug abuse [Recovering/Resolving]
  - Abdominal distension [Recovering/Resolving]
  - Psychotic disorder [Recovering/Resolving]
  - Withdrawal syndrome [Recovering/Resolving]
  - Nausea [Recovering/Resolving]
